FAERS Safety Report 6416712-4 (Version None)
Quarter: 2009Q4

REPORT INFORMATION
  Report Type: 
  Country: None (occurrence: None)
  Receive Date: 20091027
  Receipt Date: 20091015
  Transmission Date: 20100525
  Serious: Yes (Death, Hospitalization)
  Sender: FDA-Public Use
  Company Number: US-ELI_LILLY_AND_COMPANY-US200910003689

PATIENT
  Age: 43 Year
  Sex: Male

DRUGS (6)
  1. CYMBALTA [Suspect]
     Indication: MAJOR DEPRESSION
     Dosage: 30 MG, UNK
     Dates: start: 20090603
  2. CYMBALTA [Suspect]
     Dosage: 60 MG, DAILY (1/D)
  3. METHADONE HYDROCHLORIDE [Concomitant]
  4. REMERON [Concomitant]
  5. VALIUM [Concomitant]
     Dates: end: 20090601
  6. ALCOHOL [Concomitant]

REACTIONS (3)
  - ALCOHOL ABUSE [None]
  - COMPLETED SUICIDE [None]
  - DRUG INEFFECTIVE [None]
